FAERS Safety Report 4263130-3 (Version None)
Quarter: 2004Q1

REPORT INFORMATION
  Report Type: 
  Country: None (occurrence: None)
  Receive Date: 20040105
  Receipt Date: 20030528
  Transmission Date: 20041129
  Serious: Yes (Life-Threatening)
  Sender: FDA-Public Use
  Company Number: JP-BRISTOL-MYERS SQUIBB COMPANY-12288759

PATIENT
  Age: 78 Year
  Sex: Male

DRUGS (3)
  1. MITOMYCIN [Suspect]
     Indication: HEPATIC NEOPLASM MALIGNANT
     Route: 013
     Dates: start: 20030514, end: 20030514
  2. FARMORUBICIN [Suspect]
     Indication: HEPATIC NEOPLASM MALIGNANT
     Route: 013
     Dates: start: 20030514, end: 20030514
  3. LIPIODOL [Suspect]
     Indication: HEPATIC NEOPLASM MALIGNANT
     Route: 013
     Dates: start: 20030514, end: 20030514

REACTIONS (6)
  - ANAPHYLACTIC SHOCK [None]
  - DEPRESSED LEVEL OF CONSCIOUSNESS [None]
  - FLUSHING [None]
  - OEDEMA [None]
  - PRURITUS [None]
  - RESPIRATORY FAILURE [None]
